FAERS Safety Report 5893571-X (Version None)
Quarter: 2008Q3

REPORT INFORMATION
  Report Type: 
  Country: None (occurrence: None)
  Receive Date: 20080923
  Receipt Date: 20080918
  Transmission Date: 20090109
  Serious: Yes (Death, Hospitalization)
  Sender: FDA-Public Use
  Company Number: US-BRISTOL-MYERS SQUIBB COMPANY-14340038

PATIENT
  Age: 44 Year
  Sex: Male

DRUGS (1)
  1. ABILIFY [Suspect]
     Dosage: STARTED ON 17-JUN-2008 WITH ABILIFY 10MG THEN INCREASED TO 15MG
     Dates: start: 20080617

REACTIONS (3)
  - BODY TEMPERATURE INCREASED [None]
  - HEPATIC FAILURE [None]
  - MUSCLE RIGIDITY [None]
